FAERS Safety Report 7170040-0 (Version None)
Quarter: 2010Q4

REPORT INFORMATION
  Report Type: 
  Country: None (occurrence: None)
  Receive Date: 20101217
  Receipt Date: 20101207
  Transmission Date: 20110411
  Serious: Yes (Other)
  Sender: FDA-Public Use
  Company Number: AT-TEVA-259569ISR

PATIENT
  Sex: Female

DRUGS (2)
  1. LAMOTRIGINE [Suspect]
  2. BUPROPION HYDROCHLORIDE [Concomitant]

REACTIONS (2)
  - INTRAOCULAR PRESSURE INCREASED [None]
  - MALAISE [None]
